FAERS Safety Report 4906008-1 (Version None)
Quarter: 2006Q1

REPORT INFORMATION
  Report Type: 
  Country: None (occurrence: None)
  Receive Date: 20060206
  Receipt Date: 20060125
  Transmission Date: 20060701
  Serious: Yes (Other)
  Sender: FDA-Public Use
  Company Number: 2006012505

PATIENT
  Age: 87 Year
  Sex: Male
  Weight: 78.9259 kg

DRUGS (2)
  1. BENADRYL [Suspect]
     Indication: SLEEP DISORDER
     Dosage: 1 ULTRATAB ONCE NIGHTLY, ORAL
     Route: 048
     Dates: start: 20050101
  2. TRIAZOLAM [Concomitant]

REACTIONS (1)
  - VISUAL ACUITY REDUCED [None]
